FAERS Safety Report 8962384 (Version 1)
Quarter: 2012Q4

REPORT INFORMATION
  Report Type: Spontaneous
  Country: US (occurrence: None)
  Receive Date: 20121211
  Receipt Date: 20121211
  Transmission Date: 20130627
  Serious: Yes (Hospitalization)
  Sender: FDA-Public Use
  Company Number: None

PATIENT
  Age: 34 Year
  Sex: Male

DRUGS (2)
  1. ERLOTINIB [Suspect]
     Indication: SQUAMOUS CELL CARCINOMA OF PHARYNX
     Dosage: 150mg PO daily
     Route: 048
     Dates: start: 20121126
  2. ERLOTINIB [Suspect]
     Indication: SQUAMOUS CELL CARCINOMA OF PHARYNX
     Dosage: 150mg PO daily
     Route: 048
     Dates: start: 20121202

REACTIONS (5)
  - Rash [None]
  - Unresponsive to stimuli [None]
  - Septic shock [None]
  - Pneumonia [None]
  - Rash [None]
